FAERS Safety Report 23454713 (Version 1)
Quarter: 2024Q1

REPORT INFORMATION
  Report Type: Other
  Country: ES (occurrence: ES)
  Receive Date: 20240130
  Receipt Date: 20240130
  Transmission Date: 20240410
  Serious: Yes (Death)
  Sender: FDA-Public Use
  Company Number: ES-RECORDATI-2023003631

PATIENT

DRUGS (7)
  1. PASIREOTIDE [Suspect]
     Active Substance: PASIREOTIDE
     Indication: Ectopic ACTH syndrome
     Dosage: 0.6 MILLIGRAM, BID
     Route: 058
  2. PASIREOTIDE [Suspect]
     Active Substance: PASIREOTIDE
     Indication: Cushing^s syndrome
  3. PASIREOTIDE [Suspect]
     Active Substance: PASIREOTIDE
     Indication: Off label use
  4. METYRAPONE [Suspect]
     Active Substance: METYRAPONE
     Indication: Ectopic ACTH syndrome
     Dosage: 250 MILLIGRAM, TID
  5. METYRAPONE [Suspect]
     Active Substance: METYRAPONE
     Indication: Cushing^s syndrome
  6. SUNITINIB [Suspect]
     Active Substance: SUNITINIB
     Indication: Lung neoplasm malignant
  7. OCTREOTIDE [Suspect]
     Active Substance: OCTREOTIDE\OCTREOTIDE ACETATE
     Indication: Lung neoplasm malignant

REACTIONS (2)
  - Neoplasm progression [Fatal]
  - Drug ineffective for unapproved indication [Recovered/Resolved]
